FAERS Safety Report 7922716-2 (Version None)
Quarter: 2011Q4

REPORT INFORMATION
  Report Type: 
  Country: None (occurrence: None)
  Receive Date: 20111117
  Receipt Date: 20111004
  Transmission Date: 20120403
  Serious: No
  Sender: FDA-Public Use
  Company Number: US-ALLERGAN-1108378US

PATIENT
  Age: 64 Year
  Sex: Female

DRUGS (2)
  1. ALPHAGAN P [Suspect]
     Indication: GLAUCOMA
     Dosage: UNK
     Dates: start: 20110503, end: 20110520
  2. COMBIGAN [Suspect]
     Indication: GLAUCOMA
     Dosage: UNK
     Dates: start: 20110520, end: 20110603

REACTIONS (3)
  - THERAPEUTIC RESPONSE DECREASED [None]
  - PARAESTHESIA ORAL [None]
  - JOINT SWELLING [None]
